FAERS Safety Report 25162054 (Version 2)
Quarter: 2025Q2

REPORT INFORMATION
  Report Type: Spontaneous
  Country: US (occurrence: US)
  Receive Date: 20250404
  Receipt Date: 20250610
  Transmission Date: 20250717
  Serious: No
  Sender: SANOFI AVENTIS
  Company Number: US-SA-2025SA092303

PATIENT
  Age: 37 Year
  Sex: Female

DRUGS (6)
  1. DUPIXENT [Suspect]
     Active Substance: DUPILUMAB
     Indication: Nasal polyps
     Dosage: 300 MG, QOW
     Route: 058
     Dates: start: 202502
  2. ASTEPRO [Concomitant]
     Active Substance: AZELASTINE HYDROCHLORIDE
  3. ALLEGRA [Concomitant]
     Active Substance: FEXOFENADINE HYDROCHLORIDE
  4. NASONEX [Concomitant]
     Active Substance: MOMETASONE FUROATE
  5. PREDNISONE [Concomitant]
     Active Substance: PREDNISONE
  6. AZITHROMYCIN [Concomitant]
     Active Substance: AZITHROMYCIN

REACTIONS (11)
  - Tooth impacted [Recovered/Resolved]
  - Pain [Recovered/Resolved]
  - Oropharyngeal pain [Recovering/Resolving]
  - Ear pain [Not Recovered/Not Resolved]
  - Otorrhoea [Not Recovered/Not Resolved]
  - Pharyngitis streptococcal [Not Recovered/Not Resolved]
  - Otitis media [Not Recovered/Not Resolved]
  - Injection site pain [Recovered/Resolved]
  - Polypectomy [Unknown]
  - Myringotomy [Unknown]
  - Injection site pain [Recovered/Resolved]

NARRATIVE: CASE EVENT DATE: 20250101
